FAERS Safety Report 7673653-2 (Version None)
Quarter: 2011Q3

REPORT INFORMATION
  Report Type: 
  Country: None (occurrence: None)
  Receive Date: 20110810
  Receipt Date: 20110727
  Transmission Date: 20111222
  Serious: Yes (Disabling)
  Sender: FDA-Public Use
  Company Number: DK-MYLANLABS-2011S1016111

PATIENT
  Age: 67 Year
  Sex: Female
  Weight: 55 kg

DRUGS (3)
  1. ACETAMINOPHEN [Concomitant]
     Indication: PAIN
     Route: 048
  2. CELEBREX [Suspect]
     Indication: PAIN
     Route: 048
     Dates: start: 20030701, end: 20030826
  3. IBUPROFEN [Suspect]
     Indication: OSTEOARTHRITIS
     Dates: start: 20030101, end: 20030701

REACTIONS (2)
  - COLITIS [None]
  - DIARRHOEA [None]
